FAERS Safety Report 5093937-4 (Version None)
Quarter: 2006Q3

REPORT INFORMATION
  Report Type: 
  Country: None (occurrence: None)
  Receive Date: 20060829
  Receipt Date: 20060817
  Transmission Date: 20061208
  Serious: Yes (Death)
  Sender: FDA-Public Use
  Company Number: 2006098378

PATIENT
  Age: 77 Year
  Sex: Female

DRUGS (5)
  1. AZITHROMYCIN [Suspect]
     Indication: INFLUENZA
     Dosage: 500 MG, ORAL
     Route: 048
     Dates: start: 20060130
  2. TAMIFLU [Concomitant]
  3. RESPLEN (EPRAZINONE HYDROCHLORIDE) [Concomitant]
  4. PA (CAFFEINE, PARACETAMOL, PROMETHAZINE METHYLENE DISALICYLATE, SALICY [Concomitant]
  5. LOXOPROFEN SODIUM (LOXOPROFEN SODIUM) [Concomitant]

REACTIONS (4)
  - ANOREXIA [None]
  - DECREASED APPETITE [None]
  - INTERSTITIAL LUNG DISEASE [None]
  - RASH [None]
